FAERS Safety Report 25493691 (Version 2)
Quarter: 2025Q3

REPORT INFORMATION
  Report Type: Spontaneous
  Country: EU (occurrence: EU)
  Receive Date: 20250630
  Receipt Date: 20250711
  Transmission Date: 20251020
  Serious: Yes (Hospitalization, Other)
  Sender: TEVA
  Company Number: EU-TEVA-VS-3345702

PATIENT
  Sex: Female

DRUGS (13)
  1. TOPIRAMATE [Suspect]
     Active Substance: TOPIRAMATE
     Indication: Epilepsy of infancy with migrating focal seizures
     Route: 065
  2. PYRIDOXINE [Suspect]
     Active Substance: PYRIDOXINE
     Indication: Epilepsy of infancy with migrating focal seizures
     Route: 065
  3. THIOPENTAL SODIUM [Suspect]
     Active Substance: THIOPENTAL SODIUM
     Indication: Epilepsy of infancy with migrating focal seizures
     Route: 065
  4. PHENYTOIN [Suspect]
     Active Substance: PHENYTOIN
     Indication: Epilepsy of infancy with migrating focal seizures
     Route: 065
  5. LACOSAMIDE [Suspect]
     Active Substance: LACOSAMIDE
     Indication: Epilepsy of infancy with migrating focal seizures
     Route: 065
  6. PHENOBARBITAL [Suspect]
     Active Substance: PHENOBARBITAL
     Indication: Epilepsy of infancy with migrating focal seizures
     Route: 065
  7. KETAMINE [Suspect]
     Active Substance: KETAMINE
     Indication: Epilepsy of infancy with migrating focal seizures
     Route: 065
  8. LEUCOVORIN CALCIUM [Suspect]
     Active Substance: LEUCOVORIN CALCIUM
     Indication: Epilepsy of infancy with migrating focal seizures
     Route: 065
  9. LIDOCAINE [Suspect]
     Active Substance: LIDOCAINE
     Indication: Epilepsy of infancy with migrating focal seizures
     Route: 065
  10. PYRIDOXAL PHOSPHATE [Suspect]
     Active Substance: PYRIDOXAL PHOSPHATE
     Indication: Epilepsy of infancy with migrating focal seizures
     Route: 065
  11. MIDAZOLAM [Suspect]
     Active Substance: MIDAZOLAM
     Indication: Epilepsy of infancy with migrating focal seizures
     Route: 065
  12. LEVETIRACETAM [Suspect]
     Active Substance: LEVETIRACETAM
     Indication: Epilepsy of infancy with migrating focal seizures
     Route: 065
  13. VALPROATE SODIUM [Suspect]
     Active Substance: VALPROATE SODIUM
     Indication: Epilepsy of infancy with migrating focal seizures
     Route: 065

REACTIONS (3)
  - Drug ineffective [Unknown]
  - Cholangitis [Unknown]
  - Cholestasis [Unknown]
